FAERS Safety Report 9106339 (Version 1)
Quarter: 2013Q1

REPORT INFORMATION
  Report Type: Spontaneous
  Country: JP (occurrence: JP)
  Receive Date: 20130221
  Receipt Date: 20130221
  Transmission Date: 20140127
  Serious: Yes (Other)
  Sender: FDA-Public Use
  Company Number: PHHY2013JP011848

PATIENT
  Age: 44 Year
  Sex: Male

DRUGS (1)
  1. CICLOSPORIN [Suspect]
     Indication: PSORIATIC ARTHROPATHY
     Route: 048

REACTIONS (5)
  - Scleroderma [Unknown]
  - Renal impairment [Unknown]
  - Gastrooesophageal reflux disease [Unknown]
  - Ventricular extrasystoles [Unknown]
  - Interstitial lung disease [Unknown]
